FAERS Safety Report 4403415-0 (Version None)
Quarter: 2004Q3

REPORT INFORMATION
  Report Type: 
  Country: None (occurrence: None)
  Receive Date: 20040716
  Receipt Date: 20001205
  Transmission Date: 20050211
  Serious: Yes (Death, Hospitalization)
  Sender: FDA-Public Use
  Company Number: 02100-USA-00-0347

PATIENT
  Sex: Male

DRUGS (1)
  1. PLETAL [Suspect]
     Indication: INTERMITTENT CLAUDICATION
     Dosage: DF UNK ORAL
     Route: 048
     Dates: start: 20001101, end: 20001101

REACTIONS (3)
  - GENERAL PHYSICAL HEALTH DETERIORATION [None]
  - PANCREATITIS NECROTISING [None]
  - SHOCK [None]
